FAERS Safety Report 17191200 (Version 1)
Quarter: 2019Q4

REPORT INFORMATION
  Report Type: Spontaneous
  Country: US (occurrence: US)
  Receive Date: 20191220
  Receipt Date: 20191220
  Transmission Date: 20200122
  Serious: Yes (Death, Life-Threatening, Hospitalization, Disabling)
  Sender: FDA-Public Use
  Company Number: None

PATIENT
  Age: 102 Year
  Sex: Female
  Weight: 54 kg

DRUGS (3)
  1. ASPIRIN. [Concomitant]
     Active Substance: ASPIRIN
  2. GABAPENTIN, 300 MG TWICE DAILY, GENERIC FOR NEURONTIN [Suspect]
     Active Substance: GABAPENTIN
     Indication: PERIPHERAL VASCULAR DISORDER
     Dosage: ?          QUANTITY:1 CAPSULE(S);?
     Route: 048
     Dates: start: 20190917, end: 20191108
  3. BLOOD PRESSURE PATCH [Concomitant]

REACTIONS (6)
  - Tremor [None]
  - Somnolence [None]
  - Seizure [None]
  - Cough [None]
  - Loss of consciousness [None]
  - Eye movement disorder [None]

NARRATIVE: CASE EVENT DATE: 20191108
